FAERS Safety Report 11142706 (Version 1)
Quarter: 2015Q2

REPORT INFORMATION
  Report Type: Spontaneous
  Country: US (occurrence: None)
  Receive Date: 20150526
  Receipt Date: 20150526
  Transmission Date: 20150821
  Serious: Yes (Other)
  Sender: FDA-Public Use
  Company Number: None

PATIENT
  Age: 48 Year
  Sex: Male
  Weight: 89.81 kg

DRUGS (4)
  1. NEXIUM [Suspect]
     Active Substance: ESOMEPRAZOLE MAGNESIUM
     Indication: OESOPHAGEAL DISORDER
     Dosage: 2 PILLS
     Route: 048
  2. FISH OIL [Concomitant]
     Active Substance: FISH OIL
  3. NEXIUM [Suspect]
     Active Substance: ESOMEPRAZOLE MAGNESIUM
     Indication: INDURATION
     Dosage: 2 PILLS
     Route: 048
  4. NEXIUM [Suspect]
     Active Substance: ESOMEPRAZOLE MAGNESIUM
     Indication: EROSIVE OESOPHAGITIS
     Dosage: 2 PILLS
     Route: 048

REACTIONS (5)
  - Fluid intake reduced [None]
  - Foreign body [None]
  - Insomnia [None]
  - Feeding disorder [None]
  - Pain [None]

NARRATIVE: CASE EVENT DATE: 20150518
